FAERS Safety Report 13707922 (Version 3)
Quarter: 2017Q3

REPORT INFORMATION
  Report Type: Spontaneous
  Country: US (occurrence: US)
  Receive Date: 20170630
  Receipt Date: 20170925
  Transmission Date: 20171127
  Serious: Yes (Other)
  Sender: FDA-Public Use
  Company Number: US-BAYER-2017-125915

PATIENT
  Age: 25 Year
  Sex: Female
  Weight: 105.2 kg

DRUGS (1)
  1. SKYLA [Suspect]
     Active Substance: LEVONORGESTREL
     Indication: CONTRACEPTION
     Dosage: 14 MCG/24HR, CONT
     Route: 015
     Dates: start: 20150518

REACTIONS (6)
  - Vulvovaginitis [None]
  - Device malfunction [None]
  - Hypomenorrhoea [None]
  - Pelvic pain [None]
  - Device dislocation [None]
  - Vaginal infection [None]

NARRATIVE: CASE EVENT DATE: 20150602
